FAERS Safety Report 20903320 (Version 1)
Quarter: 2022Q2

REPORT INFORMATION
  Report Type: Spontaneous
  Country: US (occurrence: US)
  Receive Date: 20220601
  Receipt Date: 20220601
  Transmission Date: 20220721
  Serious: Yes (Other)
  Sender: FDA-Public Use
  Company Number: US-BRISTOL-MYERS SQUIBB COMPANY-2022-050370

PATIENT
  Age: 60 Year
  Sex: Female
  Weight: 52.6 kg

DRUGS (6)
  1. ELIQUIS [Suspect]
     Active Substance: APIXABAN
     Indication: Product used for unknown indication
     Route: 065
  2. COUMADIN [Suspect]
     Active Substance: WARFARIN SODIUM
     Indication: Product used for unknown indication
     Dosage: UNKNOWN
     Route: 065
  3. TREPROSTINIL SODIUM [Suspect]
     Active Substance: TREPROSTINIL SODIUM
     Indication: Pulmonary arterial hypertension
     Dosage: 10.0 MG/ML CONTINUING
     Route: 058
     Dates: start: 20090805
  4. TREPROSTINIL SODIUM [Suspect]
     Active Substance: TREPROSTINIL SODIUM
     Indication: Product used for unknown indication
     Dosage: CONTINUING
     Route: 058
  5. TREPROSTINIL SODIUM [Suspect]
     Active Substance: TREPROSTINIL SODIUM
     Indication: Product used for unknown indication
     Route: 058
  6. TRACLEER [Concomitant]
     Active Substance: BOSENTAN

REACTIONS (11)
  - Infusion site thrombosis [Recovering/Resolving]
  - Infusion site rash [Unknown]
  - Infusion site haemorrhage [Unknown]
  - Infusion site reaction [Recovering/Resolving]
  - Infusion site mass [Unknown]
  - Infusion site swelling [Unknown]
  - Pallor [Unknown]
  - Asthenia [Unknown]
  - Oxygen saturation decreased [Unknown]
  - Weight decreased [Unknown]
  - Stress [Unknown]

NARRATIVE: CASE EVENT DATE: 20220101
